FAERS Safety Report 10447067 (Version 1)
Quarter: 2014Q3

REPORT INFORMATION
  Report Type: Spontaneous
  Country: US (occurrence: US)
  Receive Date: 20140911
  Receipt Date: 20140911
  Transmission Date: 20150326
  Serious: No
  Sender: FDA-Public Use
  Company Number: US-ASTRAZENECA-2014SE67859

PATIENT
  Sex: Female

DRUGS (2)
  1. NEXIUM 24HR [Suspect]
     Active Substance: ESOMEPRAZOLE MAGNESIUM
     Route: 048
  2. ALPRAZOLAM. [Interacting]
     Active Substance: ALPRAZOLAM
     Dosage: HALF OF THE 0.25MG,UNKNOWN,0.125 MG, UNK
     Route: 065

REACTIONS (3)
  - Feeling abnormal [Unknown]
  - Nervousness [Unknown]
  - Drug interaction [Unknown]
